FAERS Safety Report 9758331 (Version 1)
Quarter: 2013Q4

REPORT INFORMATION
  Report Type: Spontaneous
  Country: US (occurrence: None)
  Receive Date: 20131213
  Receipt Date: 20131213
  Transmission Date: 20140711
  Serious: Yes (Other)
  Sender: FDA-Public Use
  Company Number: None

PATIENT
  Age: 38 Year
  Sex: Female
  Weight: 95.26 kg

DRUGS (2)
  1. SPRINTEC [Suspect]
     Indication: ACNE
     Route: 048
     Dates: start: 20120701, end: 20131102
  2. LEXAPRO [Concomitant]

REACTIONS (2)
  - Thrombosis [None]
  - Pulmonary embolism [None]
